FAERS Safety Report 6764288-4 (Version None)
Quarter: 2010Q2

REPORT INFORMATION
  Report Type: 
  Country: None (occurrence: None)
  Receive Date: 20100610
  Receipt Date: 20100603
  Transmission Date: 20101027
  Serious: Yes (Other)
  Sender: FDA-Public Use
  Company Number: JP-MERCK-1006USA01043

PATIENT

DRUGS (1)
  1. PEPCID [Suspect]
     Route: 065

REACTIONS (1)
  - VENOUS THROMBOSIS [None]
